FAERS Safety Report 9340364 (Version 1)
Quarter: 2013Q2

REPORT INFORMATION
  Report Type: Spontaneous
  Country: GB (occurrence: GB)
  Receive Date: 20130610
  Receipt Date: 20130610
  Transmission Date: 20140414
  Serious: Yes (Death)
  Sender: FDA-Public Use
  Company Number: GB-ELI_LILLY_AND_COMPANY-GB201305007227

PATIENT
  Age: 87 Year
  Sex: Female

DRUGS (1)
  1. FORSTEO [Suspect]

REACTIONS (3)
  - Death [Fatal]
  - Fall [Unknown]
  - Laceration [Unknown]
